FAERS Safety Report 8971261 (Version 2)
Quarter: 2013Q1

REPORT INFORMATION
  Report Type: Report from Study
  Country: JP (occurrence: JP)
  Receive Date: 20121217
  Receipt Date: 20130123
  Transmission Date: 20140127
  Serious: Yes (Hospitalization)
  Sender: FDA-Public Use
  Company Number: JP-GLAXOSMITHKLINE-B0852526A

PATIENT
  Age: 80 Year
  Sex: Male

DRUGS (3)
  1. PAXIL [Suspect]
     Indication: DEPRESSION
     Route: 048
     Dates: start: 20121112, end: 20121125
  2. MIRTAZAPINE [Suspect]
     Indication: DEPRESSION
     Route: 048
     Dates: start: 20121112
  3. FLUNITRAZEPAM [Concomitant]
     Indication: DEPRESSION
     Route: 048

REACTIONS (2)
  - Anxiety [Recovering/Resolving]
  - Irritability [Recovering/Resolving]
